FAERS Safety Report 9768853 (Version 1)
Quarter: 2013Q4

REPORT INFORMATION
  Report Type: Spontaneous
  Country: FR (occurrence: FR)
  Receive Date: 20131218
  Receipt Date: 20131218
  Transmission Date: 20140711
  Serious: Yes (Hospitalization)
  Sender: FDA-Public Use
  Company Number: FR-ORION CORPORATION ORION PHARMA-ENTC2013-0472

PATIENT
  Age: 66 Year
  Sex: Female

DRUGS (9)
  1. STALEVO [Suspect]
     Indication: PARKINSON^S DISEASE
     Dosage: STRENGTH:150/37.5/200 MG
     Route: 048
     Dates: start: 201309, end: 20131009
  2. PRIMPERAN [Concomitant]
     Route: 065
     Dates: end: 201307
  3. AZILECT [Concomitant]
     Route: 065
  4. AMLOR [Concomitant]
     Route: 065
  5. BICARBONATE DE SODIUM [Concomitant]
     Route: 065
  6. DAFALGAN [Concomitant]
     Route: 065
  7. KAYEXALATE [Concomitant]
     Route: 065
  8. FOSRENOL [Concomitant]
     Route: 065
  9. INEXIUM [Concomitant]
     Route: 065

REACTIONS (3)
  - Epilepsy [Recovered/Resolved]
  - Hallucination [Unknown]
  - Agitation [Unknown]
